FAERS Safety Report 6252993-8 (Version None)
Quarter: 2009Q2

REPORT INFORMATION
  Report Type: 
  Country: None (occurrence: None)
  Receive Date: 20090629
  Receipt Date: 20090629
  Transmission Date: 20091009
  Serious: Yes (Hospitalization)
  Sender: FDA-Public Use
  Company Number: None

PATIENT
  Age: 48 Year
  Sex: Female
  Weight: 68 kg

DRUGS (1)
  1. LENALIDOMIDE, 25 MG, PO, QD 1-14 [Suspect]
     Indication: MULTIPLE MYELOMA
     Dosage: 25 MG, QD 1-14, PO
     Route: 048
     Dates: start: 20090602, end: 20090611

REACTIONS (4)
  - ATRIAL FIBRILLATION [None]
  - CARDIAC FAILURE CONGESTIVE [None]
  - MYOCARDIAL INFARCTION [None]
  - TACHYCARDIA [None]
